FAERS Safety Report 6293637-9 (Version None)
Quarter: 2009Q3

REPORT INFORMATION
  Report Type: 
  Country: None (occurrence: None)
  Receive Date: 20090803
  Receipt Date: 20090723
  Transmission Date: 20100115
  Serious: Yes (Other)
  Sender: FDA-Public Use
  Company Number: US-JNJFOC-20090707964

PATIENT

DRUGS (6)
  1. PREZISTA [Suspect]
     Indication: HIV INFECTION
  2. NORVIR [Suspect]
     Indication: HIV INFECTION
  3. TRUVADA [Suspect]
     Indication: HIV INFECTION
  4. WELLBUTRIN [Concomitant]
     Indication: ANXIETY
  5. PROZAC [Concomitant]
     Indication: ANXIETY
  6. ATIVAN [Concomitant]
     Indication: ANXIETY

REACTIONS (4)
  - DEPRESSION [None]
  - DIARRHOEA [None]
  - FATIGUE [None]
  - NAUSEA [None]
